FAERS Safety Report 8760772 (Version 1)
Quarter: 2012Q4

REPORT INFORMATION
  Report Type: 
  Country: BR (occurrence: BR)
  Receive Date: 20120830
  Receipt Date: 20120830
  Transmission Date: 20130627
  Serious: Yes (Death, Other)
  Sender: FDA-Public Use
  Company Number: PHHY2012BR074632

PATIENT
  Age: 62 Year
  Sex: Male

DRUGS (2)
  1. FORASEQ [Suspect]
     Indication: LUNG DISORDER
     Dosage: 2 inhalations a day (each inhalation with 1 capsule of each treatment)
  2. COMBIVENT [Concomitant]

REACTIONS (2)
  - Septic shock [Fatal]
  - Pneumonia [Fatal]
